FAERS Safety Report 15111770 (Version 1)
Quarter: 2018Q2

REPORT INFORMATION
  Report Type: Spontaneous
  Country: US (occurrence: US)
  Receive Date: 20180612
  Receipt Date: 20180612
  Transmission Date: 20180711
  Serious: No
  Sender: FDA-Public Use
  Company Number: None

PATIENT
  Age: 73 Year
  Sex: Male

DRUGS (1)
  1. TEMOZOLOMIDE 20MG CAP [Suspect]
     Active Substance: TEMOZOLOMIDE
     Dates: start: 20180509, end: 20180612

REACTIONS (3)
  - Transcription medication error [None]
  - Drug dispensing error [None]
  - Incorrect dose administered [None]

NARRATIVE: CASE EVENT DATE: 20180612
